FAERS Safety Report 7991278-6 (Version None)
Quarter: 2011Q4

REPORT INFORMATION
  Report Type: 
  Country: None (occurrence: None)
  Receive Date: 20111219
  Receipt Date: 20111206
  Transmission Date: 20120403
  Serious: Yes (Hospitalization, Other)
  Sender: FDA-Public Use
  Company Number: JP-MERCK-1112USA00305

PATIENT
  Age: 81 Year
  Sex: Female

DRUGS (3)
  1. ELCITONIN [Concomitant]
     Indication: OSTEOPOROSIS
     Dosage: 20 UNDER 1000UNIT
     Route: 030
     Dates: start: 20110810, end: 20111023
  2. FOSAMAX [Suspect]
     Indication: OSTEOPOROSIS
     Route: 048
     Dates: start: 20091130, end: 20110812
  3. ELDECALCITOL [Concomitant]
     Indication: OSTEOPOROSIS
     Route: 048

REACTIONS (4)
  - FALL [None]
  - BONE PAIN [None]
  - FEMUR FRACTURE [None]
  - SPINAL COMPRESSION FRACTURE [None]
